FAERS Safety Report 9438759 (Version 2)
Quarter: 2013Q4

REPORT INFORMATION
  Report Type: Spontaneous
  Country: GB (occurrence: GB)
  Receive Date: 20130802
  Receipt Date: 20131107
  Transmission Date: 20140711
  Serious: Yes (Other)
  Sender: FDA-Public Use
  Company Number: GB-ROCHE-1254933

PATIENT
  Age: 20 Year
  Sex: Male

DRUGS (2)
  1. ISOTRETINOIN [Suspect]
     Indication: ACNE
     Route: 048
     Dates: start: 20130319
  2. ISOTRETINOIN [Suspect]
     Route: 048
     Dates: end: 20130709

REACTIONS (7)
  - Ocular hyperaemia [Unknown]
  - Vision blurred [Unknown]
  - Dry eye [Unknown]
  - Eczema [Unknown]
  - Iritis [Recovering/Resolving]
  - Mass [Unknown]
  - Visual acuity reduced [Unknown]
